FAERS Safety Report 17674045 (Version 3)
Quarter: 2020Q2

REPORT INFORMATION
  Report Type: Spontaneous
  Country: AT (occurrence: AT)
  Receive Date: 20200416
  Receipt Date: 20200622
  Transmission Date: 20200714
  Serious: Yes (Other)
  Sender: FDA-Public Use
  Company Number: AT-BIOGEN-2020BI00863928

PATIENT
  Sex: Female
  Weight: 63 kg

DRUGS (5)
  1. FRAGMIN [Concomitant]
     Active Substance: DALTEPARIN SODIUM
     Indication: VENTRICULAR FIBRILLATION
     Route: 065
     Dates: start: 201905, end: 202003
  2. TYSABRI [Suspect]
     Active Substance: NATALIZUMAB
     Indication: RELAPSING-REMITTING MULTIPLE SCLEROSIS
     Route: 042
     Dates: start: 201605
  3. EUTHYROX [Concomitant]
     Active Substance: LEVOTHYROXINE SODIUM
     Indication: HYPOTHYROIDISM
     Route: 065
     Dates: start: 201812
  4. METOPROLOL SUCCINATE. [Concomitant]
     Active Substance: METOPROLOL SUCCINATE
     Indication: EXTRASYSTOLES
     Dosage: FORM OF ADMIN: RETARDED RELEASE (NOS)
     Route: 048
     Dates: start: 2015
  5. THROMBO ASS [Concomitant]
     Active Substance: ASPIRIN
     Indication: VENTRICULAR FIBRILLATION
     Route: 065
     Dates: start: 201905, end: 201912

REACTIONS (5)
  - Placental disorder [Recovered/Resolved]
  - Placental insufficiency [Recovered/Resolved]
  - Tachycardia [Recovered/Resolved]
  - Off label use [Unknown]
  - Maternal exposure during pregnancy [Recovered/Resolved]
